FAERS Safety Report 7711775-8 (Version None)
Quarter: 2011Q3

REPORT INFORMATION
  Report Type: 
  Country: None (occurrence: None)
  Receive Date: 20110826
  Receipt Date: 20110823
  Transmission Date: 20111222
  Serious: Yes (Other)
  Sender: FDA-Public Use
  Company Number: US-AMGEN-USASP2011043149

PATIENT
  Age: 65 Year
  Sex: Female

DRUGS (2)
  1. ANTINEOPLASTIC AGENTS [Concomitant]
  2. NEULASTA [Suspect]
     Indication: NEUTROPENIA
     Dosage: UNK
     Dates: start: 20110801

REACTIONS (5)
  - DYSPNOEA [None]
  - FEELING ABNORMAL [None]
  - FATIGUE [None]
  - CHEST DISCOMFORT [None]
  - HEART RATE INCREASED [None]
